FAERS Safety Report 15072705 (Version 5)
Quarter: 2019Q4

REPORT INFORMATION
  Report Type: Report from Study
  Country: BR (occurrence: BR)
  Receive Date: 20180627
  Receipt Date: 20191014
  Transmission Date: 20200122
  Serious: Yes (Hospitalization)
  Sender: FDA-Public Use
  Company Number: BR-ROCHE-2145292

PATIENT
  Age: 62 Year
  Sex: Female
  Weight: 76 kg

DRUGS (1)
  1. XOLAIR [Suspect]
     Active Substance: OMALIZUMAB
     Indication: ASTHMA
     Route: 058
     Dates: start: 20180410

REACTIONS (10)
  - Cough [Not Recovered/Not Resolved]
  - Drug ineffective [Unknown]
  - Pyrexia [Not Recovered/Not Resolved]
  - Malaise [Recovered/Resolved]
  - Dyspnoea [Not Recovered/Not Resolved]
  - Asthma [Unknown]
  - Bronchospasm [Unknown]
  - Asthmatic crisis [Recovered/Resolved]
  - Malaise [Unknown]
  - Fatigue [Not Recovered/Not Resolved]

NARRATIVE: CASE EVENT DATE: 20180613
